FAERS Safety Report 5908216-X (Version None)
Quarter: 2008Q4

REPORT INFORMATION
  Report Type: 
  Country: None (occurrence: None)
  Receive Date: 20081006
  Receipt Date: 20080924
  Transmission Date: 20090506
  Serious: Yes (Hospitalization)
  Sender: FDA-Public Use
  Company Number: SE-JNJFOC-20080905770

PATIENT
  Sex: Female

DRUGS (10)
  1. HALDOL [Suspect]
     Indication: DRUG USE FOR UNKNOWN INDICATION
     Route: 048
  2. ZYPREXA [Suspect]
     Indication: DRUG USE FOR UNKNOWN INDICATION
     Route: 048
  3. DEPOLAN [Suspect]
     Indication: RENAL CANCER
     Route: 048
  4. DIKLOFENAK [Suspect]
     Indication: RENAL CANCER
     Route: 048
  5. XALATAN [Concomitant]
     Route: 065
  6. OMEPRAZOLE [Concomitant]
     Route: 065
  7. ZOPIKLON [Concomitant]
     Route: 065
  8. MYCOSTATIN [Concomitant]
     Route: 048
  9. ASPIRIN [Concomitant]
     Route: 065
  10. CILAXORAL [Concomitant]
     Route: 048

REACTIONS (2)
  - BLOOD CREATININE INCREASED [None]
  - COGNITIVE DISORDER [None]
